FAERS Safety Report 8442103 (Version 2)
Quarter: 2014Q1

REPORT INFORMATION
  Report Type: Report from Study
  Country: US (occurrence: US)
  Receive Date: 20120305
  Receipt Date: 20140310
  Transmission Date: 20141002
  Serious: Yes (Hospitalization)
  Sender: FDA-Public Use
  Company Number: US-ROCHE-GNE299775

PATIENT
  Age: 28 Year
  Sex: Female
  Weight: 64.47 kg

DRUGS (7)
  1. OMALIZUMAB [Suspect]
     Indication: ASTHMA
     Route: 058
     Dates: start: 200505
  2. BENADRYL (UNITED STATES) [Concomitant]
     Indication: HYPERSENSITIVITY
     Dosage: UNK
     Route: 065
  3. SEREVENT [Concomitant]
     Indication: ASTHMA
     Dosage: UNK
     Route: 065
  4. FLOVENT [Concomitant]
     Indication: ASTHMA
     Dosage: UNK
     Route: 065
  5. FLAGYL [Concomitant]
     Indication: VAGINITIS BACTERIAL
  6. TYLENOL [Concomitant]
  7. ZOLOFT [Concomitant]
     Indication: PRODUCT USED FOR UNKNOWN INDICATION

REACTIONS (2)
  - Gestational hypertension [Recovered/Resolved]
  - Exposure during pregnancy [Unknown]
